FAERS Safety Report 20472750 (Version 2)
Quarter: 2022Q1

REPORT INFORMATION
  Report Type: Spontaneous
  Country: US (occurrence: US)
  Receive Date: 20220215
  Receipt Date: 20220311
  Transmission Date: 20220423
  Serious: Yes (Hospitalization, Other)
  Sender: FDA-Public Use
  Company Number: US-009507513-2202USA001217

PATIENT
  Sex: Female

DRUGS (1)
  1. KEYTRUDA [Suspect]
     Active Substance: PEMBROLIZUMAB
     Indication: Breast cancer female
     Dosage: 200 MILLIGRAM, Q3W
     Route: 042
     Dates: start: 20210811, end: 20211227

REACTIONS (11)
  - Malignant neoplasm progression [Unknown]
  - Localised infection [Unknown]
  - Adverse event [Unknown]
  - Impaired quality of life [Unknown]
  - Decreased appetite [Unknown]
  - Nausea [Unknown]
  - Fatigue [Unknown]
  - Dysphagia [Unknown]
  - Weight decreased [Recovering/Resolving]
  - Dysgeusia [Unknown]
  - Physical deconditioning [Unknown]

NARRATIVE: CASE EVENT DATE: 20210101
